FAERS Safety Report 4497487-5 (Version None)
Quarter: 2004Q4

REPORT INFORMATION
  Report Type: 
  Country: None (occurrence: None)
  Receive Date: 20041110
  Receipt Date: 20041105
  Transmission Date: 20050328
  Serious: Yes (Life-Threatening, Hospitalization, Disabling)
  Sender: FDA-Public Use
  Company Number: US-MERCK-0411USA00997

PATIENT
  Age: 72 Year
  Sex: Female

DRUGS (1)
  1. VIOXX [Suspect]
     Route: 048
     Dates: start: 20031114, end: 20031201

REACTIONS (5)
  - ADVERSE EVENT [None]
  - CARDIOVASCULAR DISORDER [None]
  - GRAND MAL CONVULSION [None]
  - LEG AMPUTATION [None]
  - OEDEMA PERIPHERAL [None]
